FAERS Safety Report 5735519-4 (Version None)
Quarter: 2008Q2

REPORT INFORMATION
  Report Type: 
  Country: None (occurrence: None)
  Receive Date: 20080512
  Receipt Date: 20080502
  Transmission Date: 20081010
  Serious: Yes (Hospitalization, Other)
  Sender: FDA-Public Use
  Company Number: US-PFIZER INC-2006141505

PATIENT
  Sex: Male

DRUGS (1)
  1. CELEBREX [Suspect]
     Route: 048
     Dates: start: 20010119, end: 20021012

REACTIONS (4)
  - CARDIOVASCULAR DISORDER [None]
  - DEEP VEIN THROMBOSIS [None]
  - MYOCARDIAL INFARCTION [None]
  - PULMONARY EMBOLISM [None]
